FAERS Safety Report 24208670 (Version 2)
Quarter: 2024Q3

REPORT INFORMATION
  Report Type: Other
  Country: US (occurrence: US)
  Receive Date: 20240814
  Receipt Date: 20240827
  Transmission Date: 20241017
  Serious: Yes (Life-Threatening, Hospitalization)
  Sender: ALVOGEN
  Company Number: US-ALVOGEN-2024095303

PATIENT
  Age: 56 Year
  Sex: Male

DRUGS (2)
  1. LENALIDOMIDE [Suspect]
     Active Substance: LENALIDOMIDE
     Indication: Plasma cell myeloma
     Dosage: 10 MG DAILY
  2. RIVAROXABAN [Concomitant]
     Active Substance: RIVAROXABAN
     Indication: Coagulopathy

REACTIONS (1)
  - Thrombotic thrombocytopenic purpura [Recovering/Resolving]
